FAERS Safety Report 13072978 (Version 1)
Quarter: 2016Q4

REPORT INFORMATION
  Report Type: Spontaneous
  Country: JP (occurrence: JP)
  Receive Date: 20161229
  Receipt Date: 20161229
  Transmission Date: 20170207
  Serious: Yes (Hospitalization, Other)
  Sender: FDA-Public Use
  Company Number: JP-BRISTOL-MYERS SQUIBB COMPANY-BMS-2016-110414

PATIENT
  Age: 79 Year
  Sex: Female

DRUGS (2)
  1. UNASYN [Suspect]
     Active Substance: AMPICILLIN SODIUM\SULBACTAM SODIUM
     Indication: PRODUCT USED FOR UNKNOWN INDICATION
     Route: 065
  2. METGLUCO [Suspect]
     Active Substance: METFORMIN HYDROCHLORIDE
     Indication: TYPE 2 DIABETES MELLITUS
     Dosage: 2000 MG, UNK
     Route: 048

REACTIONS (4)
  - Faeces soft [Unknown]
  - Abdominal pain [Unknown]
  - Abdominal pain upper [Unknown]
  - Pseudomembranous colitis [Unknown]

NARRATIVE: CASE EVENT DATE: 201612
